FAERS Safety Report 8297356-9 (Version None)
Quarter: 2012Q2

REPORT INFORMATION
  Report Type: 
  Country: None (occurrence: None)
  Receive Date: 20120419
  Receipt Date: 20120412
  Transmission Date: 20120825
  Serious: Yes (Death)
  Sender: FDA-Public Use
  Company Number: ES-UCBSA-055227

PATIENT
  Age: 45 Year
  Sex: Male

DRUGS (8)
  1. CLARITHROMYCIN [Suspect]
     Indication: PNEUMONIA
     Route: 048
     Dates: start: 20120207, end: 20120209
  2. FLUCONAZOLE [Suspect]
     Indication: PNEUMONIA
     Route: 048
     Dates: start: 20120207, end: 20120209
  3. GANCICLOVIR SODIUM [Suspect]
     Route: 042
     Dates: start: 20120211, end: 20120215
  4. SULFAMETHOXAZOLE AND TRIMETHOPRIM [Suspect]
     Indication: PNEUMONIA
     Route: 042
     Dates: start: 20120203, end: 20120215
  5. KEPPRA [Suspect]
     Dosage: DOSE STRENGTH 500 MG
     Route: 048
     Dates: start: 20120204, end: 20120207
  6. MAXIPIME [Suspect]
     Indication: PNEUMONIA
     Route: 042
     Dates: start: 20120203, end: 20120208
  7. DEXAMETHASONE [Suspect]
     Dates: start: 20120209, end: 20120228
  8. TARGOCID [Suspect]
     Route: 042
     Dates: start: 20120208, end: 20120216

REACTIONS (1)
  - APLASIA [None]
